FAERS Safety Report 9729296 (Version 3)
Quarter: 2014Q3

REPORT INFORMATION
  Report Type: Spontaneous
  Country: US (occurrence: US)
  Receive Date: 20131204
  Receipt Date: 20140829
  Transmission Date: 20150326
  Serious: Yes (Hospitalization)
  Sender: FDA-Public Use
  Company Number: US-009507513-1311USA011407

PATIENT
  Sex: Female

DRUGS (1)
  1. NUVARING [Suspect]
     Active Substance: ETHINYL ESTRADIOL\ETONOGESTREL
     Indication: CONTRACEPTION
     Dosage: UNK
     Route: 067
     Dates: start: 20110118, end: 20110227

REACTIONS (6)
  - Breast adenoma [Unknown]
  - Urinary tract infection [Unknown]
  - Arthritis infective [Unknown]
  - Deep vein thrombosis [Unknown]
  - Iron deficiency anaemia [Unknown]
  - Knee operation [Unknown]

NARRATIVE: CASE EVENT DATE: 201102
